FAERS Safety Report 11598956 (Version 2)
Quarter: 2015Q4

REPORT INFORMATION
  Report Type: Spontaneous
  Country: US (occurrence: US)
  Receive Date: 20151006
  Receipt Date: 20151207
  Transmission Date: 20160304
  Serious: Yes (Other)
  Sender: FDA-Public Use
  Company Number: US-CELGENEUS-USA-2015095543

PATIENT
  Age: 71 Year
  Sex: Female
  Weight: 69.01 kg

DRUGS (1)
  1. REVLIMID [Suspect]
     Active Substance: LENALIDOMIDE
     Indication: PLASMA CELL MYELOMA
     Dosage: 15 MILLIGRAM
     Route: 048
     Dates: start: 201509

REACTIONS (4)
  - Dry eye [Unknown]
  - Erythema [Unknown]
  - Pruritus [Unknown]
  - Tinnitus [Unknown]

NARRATIVE: CASE EVENT DATE: 201509
